FAERS Safety Report 8809271 (Version 1)
Quarter: 2012Q4

REPORT INFORMATION
  Report Type: 
  Country: US (occurrence: US)
  Receive Date: 20120926
  Receipt Date: 20120926
  Transmission Date: 20130627
  Serious: No
  Sender: FDA-Public Use
  Company Number: US-PFIZER INC-2012235075

PATIENT
  Age: 49 Year
  Sex: Female
  Weight: 63.49 kg

DRUGS (1)
  1. PREMPRO [Suspect]
     Indication: MENOPAUSAL SYMPTOMS
     Dosage: 1 DF, (0.3/1.5mg) 1x/day
     Route: 048
     Dates: start: 201206

REACTIONS (1)
  - Drug ineffective [Unknown]
